FAERS Safety Report 6152044-X (Version None)
Quarter: 2009Q2

REPORT INFORMATION
  Report Type: 
  Country: None (occurrence: None)
  Receive Date: 20090408
  Receipt Date: 20090323
  Transmission Date: 20091009
  Serious: Yes (Other)
  Sender: FDA-Public Use
  Company Number: 1000004970

PATIENT
  Age: 34 Year
  Sex: Male

DRUGS (2)
  1. CITALOPRAM HYDROBROMIDE [Suspect]
     Indication: DEPRESSION
     Dosage: 20 MG (20 MG, 1 IN 1 D)
  2. TOPIRAMATE [Suspect]
     Indication: MIGRAINE PROPHYLAXIS
     Dosage: MAY INCREASE BY 25 Q 15DAYS UPTO 100MG/DAY (25 MG)

REACTIONS (5)
  - ANGLE CLOSURE GLAUCOMA [None]
  - CORNEAL OEDEMA [None]
  - DRUG LEVEL BELOW THERAPEUTIC [None]
  - MYOPIA [None]
  - SCLERAL HYPERAEMIA [None]
